FAERS Safety Report 7475608-X (Version None)
Quarter: 2011Q2

REPORT INFORMATION
  Report Type: 
  Country: None (occurrence: None)
  Receive Date: 20110512
  Receipt Date: 20110504
  Transmission Date: 20111010
  Serious: Yes (Hospitalization)
  Sender: FDA-Public Use
  Company Number: FR-PFIZER INC-2011095483

PATIENT
  Age: 44 Year
  Sex: Female

DRUGS (2)
  1. TACROLIMUS [Suspect]
     Dosage: UNK
  2. SIROLIMUS [Suspect]
     Dosage: UNK

REACTIONS (1)
  - PANCREAS TRANSPLANT REJECTION [None]
